FAERS Safety Report 4964105-9 (Version None)
Quarter: 2006Q1

REPORT INFORMATION
  Report Type: 
  Country: None (occurrence: None)
  Receive Date: 20060330
  Receipt Date: 20060309
  Transmission Date: 20060701
  Serious: No
  Sender: FDA-Public Use
  Company Number: US200511002227

PATIENT
  Age: 49 Year
  Sex: Female

DRUGS (13)
  1. CYMBALTA [Suspect]
     Indication: PAIN
     Dosage: 6 MG, DAILY (1/D),
     Dates: start: 20041101, end: 20051201
  2. ZOLOFT  /USA/ (SERTRALINE HDYROCHLORIDE) [Concomitant]
  3. SKELAXIN [Concomitant]
  4. METHADONE HCL [Concomitant]
  5. LODINE [Concomitant]
  6. ZONEGRAN [Concomitant]
  7. ULTRAM [Concomitant]
  8. KEPPRA   /USA/ (LEVETIRACETAM) [Concomitant]
  9. PAMELOR   /USA/ (NORTRIPTYLINE HYDROCHLORIDE) [Concomitant]
  10. OXYCODONE (OXYCODONE) [Concomitant]
  11. NORCO [Concomitant]
  12. PERCOCET [Concomitant]
  13. WELLBUTRIN [Concomitant]

REACTIONS (6)
  - ALANINE AMINOTRANSFERASE INCREASED [None]
  - ASPARTATE AMINOTRANSFERASE INCREASED [None]
  - BLOOD ALKALINE PHOSPHATASE INCREASED [None]
  - DEPRESSION [None]
  - PAIN IN EXTREMITY [None]
  - PHARMACEUTICAL PRODUCT COMPLAINT [None]
